FAERS Safety Report 4561254-4 (Version None)
Quarter: 2005Q1

REPORT INFORMATION
  Report Type: 
  Country: None (occurrence: None)
  Receive Date: 20050126
  Receipt Date: 20041028
  Transmission Date: 20050727
  Serious: Yes (Other)
  Sender: FDA-Public Use
  Company Number: PHBS2004AR14668

PATIENT
  Age: 19 Year
  Sex: Male

DRUGS (1)
  1. TEGRETOL [Suspect]
     Route: 065

REACTIONS (2)
  - CONVULSION [None]
  - COUGH [None]
